FAERS Safety Report 22109659 (Version 1)
Quarter: 2023Q1

REPORT INFORMATION
  Report Type: Spontaneous
  Country: GB (occurrence: GB)
  Receive Date: 20230317
  Receipt Date: 20230317
  Transmission Date: 20230418
  Serious: Yes (Other)
  Sender: FDA-Public Use
  Company Number: None

PATIENT
  Age: 50 Year
  Sex: Female
  Weight: 155.2 kg

DRUGS (3)
  1. ALENDRONATE SODIUM [Suspect]
     Active Substance: ALENDRONATE SODIUM
     Dosage: ON THE SAME DAY EACH WEEK
     Dates: start: 20220824
  2. CALCI D [Concomitant]
     Dosage: 1000MG/1,000UNIT (FORUM HEALTH PRODUCTS LTD)
     Dates: start: 20220824
  3. VITAMIN B12 [Concomitant]
     Active Substance: CYANOCOBALAMIN
     Dosage: UNK
     Route: 030
     Dates: start: 20220801

REACTIONS (4)
  - Chest pain [Recovered/Resolved]
  - Gastritis [Recovered/Resolved]
  - Back pain [Recovered/Resolved]
  - Peripheral swelling [Recovered/Resolved]

NARRATIVE: CASE EVENT DATE: 20220831
